FAERS Safety Report 19514572 (Version 1)
Quarter: 2021Q3

REPORT INFORMATION
  Report Type: Spontaneous
  Country: ES (occurrence: ES)
  Receive Date: 20210709
  Receipt Date: 20210709
  Transmission Date: 20211014
  Serious: Yes (Death, Hospitalization)
  Sender: FDA-Public Use
  Company Number: NVSC2021ES154344

PATIENT
  Age: 79 Year
  Sex: Male

DRUGS (2)
  1. PIPERACILINA+TAZOBACTAM [Suspect]
     Active Substance: PIPERACILLIN SODIUM\TAZOBACTAM SODIUM
     Indication: COVID-19
     Dosage: 4 G, Q6H (4 GR, 4 VECES AL D?A)
     Route: 042
     Dates: start: 20210108, end: 20210118
  2. METILPREDNISOL NORMON [Concomitant]
     Indication: COVID-19
     Dosage: 20 MG, 1 VEZ AL D?A
     Route: 042
     Dates: start: 20210107, end: 20210117

REACTIONS (1)
  - SJS-TEN overlap [Fatal]

NARRATIVE: CASE EVENT DATE: 20210117
